FAERS Safety Report 4268000-2 (Version None)
Quarter: 2004Q1

REPORT INFORMATION
  Report Type: 
  Country: None (occurrence: None)
  Receive Date: 20040109
  Receipt Date: 19940509
  Transmission Date: 20041129
  Serious: Yes (Hospitalization)
  Sender: FDA-Public Use
  Company Number: USA/94/00971/PLO

PATIENT
  Age: 29 Year
  Sex: Female

DRUGS (3)
  1. NYQUIL [Concomitant]
  2. TORADOL [Concomitant]
  3. PARLODEL [Suspect]
     Indication: SUPPRESSED LACTATION
     Dosage: UNSPECIFIED
     Route: 048
     Dates: start: 19930101

REACTIONS (10)
  - BRAIN DAMAGE [None]
  - CONVULSION [None]
  - DYSPNOEA [None]
  - ECLAMPSIA [None]
  - ELECTROENCEPHALOGRAM ABNORMAL [None]
  - HEADACHE [None]
  - HYPERTENSIVE ENCEPHALOPATHY [None]
  - NUCLEAR MAGNETIC RESONANCE IMAGING BRAIN ABNORMAL [None]
  - SWELLING FACE [None]
  - VASCULITIS [None]
